FAERS Safety Report 9432844 (Version 2)
Quarter: 2013Q3

REPORT INFORMATION
  Report Type: Spontaneous
  Country: US (occurrence: US)
  Receive Date: 20130731
  Receipt Date: 20130909
  Transmission Date: 20140515
  Serious: Yes (Other)
  Sender: FDA-Public Use
  Company Number: US-PFIZER INC-2013218701

PATIENT
  Age: 52 Year
  Sex: Female
  Weight: 55.33 kg

DRUGS (2)
  1. REVATIO [Suspect]
     Indication: PULMONARY ARTERIAL HYPERTENSION
     Dosage: 20 MG, 3X/DAY
     Dates: start: 201003
  2. COUMADIN [Concomitant]
     Indication: BLOOD DISORDER
     Dosage: UNK

REACTIONS (2)
  - Abasia [Recovered/Resolved]
  - Incoherent [Recovered/Resolved]
